FAERS Safety Report 24265843 (Version 1)
Quarter: 2024Q3

REPORT INFORMATION
  Report Type: Report from Study
  Country: US (occurrence: US)
  Receive Date: 20240830
  Receipt Date: 20240830
  Transmission Date: 20241017
  Serious: Yes (Other)
  Sender: ABBVIE
  Company Number: US-ABBVIE-5852183

PATIENT
  Age: 74 Year
  Sex: Female
  Weight: 82 kg

DRUGS (7)
  1. HUMIRA [Suspect]
     Active Substance: ADALIMUMAB
     Indication: Rheumatoid arthritis
     Dosage: STRENGTH: 40 MILLIGRAM
     Route: 058
     Dates: start: 20231115, end: 20240704
  2. HUMIRA [Suspect]
     Active Substance: ADALIMUMAB
     Dosage: STRENGTH: 40 MILLIGRAM
     Route: 058
     Dates: start: 202310, end: 20231101
  3. HUMIRA [Suspect]
     Active Substance: ADALIMUMAB
     Dosage: STRENGTH: 40 MILLIGRAM
     Route: 058
     Dates: start: 20240718
  4. AMLODIPINE [Concomitant]
     Active Substance: AMLODIPINE BESYLATE
     Indication: Blood pressure abnormal
  5. FARXIGA [Concomitant]
     Active Substance: DAPAGLIFLOZIN PROPANEDIOL
     Indication: Diabetes mellitus
  6. PARICALCITOL [Concomitant]
     Active Substance: PARICALCITOL
     Indication: Nephropathy
  7. ATORVASTATIN [Concomitant]
     Active Substance: ATORVASTATIN
     Indication: Blood cholesterol abnormal

REACTIONS (2)
  - Ocular discomfort [Recovering/Resolving]
  - Ocular discomfort [Recovering/Resolving]

NARRATIVE: CASE EVENT DATE: 20231101
